FAERS Safety Report 15427227 (Version 2)
Quarter: 2024Q3

REPORT INFORMATION
  Report Type: Spontaneous
  Country: SE (occurrence: SE)
  Receive Date: 20180925
  Receipt Date: 20240924
  Transmission Date: 20241017
  Serious: Yes (Other)
  Sender: MYLAN
  Company Number: SE-PFIZER INC-2018178426

PATIENT
  Age: 26 Year
  Sex: Male

DRUGS (1)
  1. SERTRALINE [Suspect]
     Active Substance: SERTRALINE HYDROCHLORIDE
     Indication: Depressive symptom
     Dosage: UNK
     Route: 065
     Dates: start: 2017

REACTIONS (5)
  - Delusion [Unknown]
  - Neutropenia [Unknown]
  - Psychotic disorder [Unknown]
  - Thrombocytopenia [Unknown]
  - Insomnia [Unknown]
